FAERS Safety Report 8530659-9 (Version None)
Quarter: 2012Q3

REPORT INFORMATION
  Report Type: 
  Country: None (occurrence: None)
  Receive Date: 20120723
  Receipt Date: 20120711
  Transmission Date: 20120928
  Serious: Yes (Hospitalization)
  Sender: FDA-Public Use
  Company Number: JP-VERTEX PHARMACEUTICALS INC.-AE-2012-009771

PATIENT
  Age: 60 Year
  Sex: Male

DRUGS (8)
  1. RIBAVIRIN [Concomitant]
     Indication: HEPATITIS C
     Route: 048
     Dates: start: 20120515, end: 20120618
  2. TELAVIC (TELAPREVIR) [Suspect]
     Indication: HEPATITIS C
     Route: 048
     Dates: start: 20120515, end: 20120624
  3. PEGINTERFERON ALFA-2B [Concomitant]
     Indication: HEPATITIS C
     Route: 058
     Dates: start: 20120515
  4. PEGINTERFERON ALFA-2B [Concomitant]
     Route: 058
     Dates: start: 20120605, end: 20120625
  5. ALLOPURINOL [Concomitant]
     Route: 048
     Dates: start: 20120529
  6. CANDESARTAN CILEXETIL [Concomitant]
     Route: 048
     Dates: start: 20091110
  7. RIBAVIRIN [Concomitant]
     Route: 048
     Dates: start: 20120619, end: 20120626
  8. GASMOTIN [Concomitant]
     Route: 048
     Dates: start: 20120529

REACTIONS (1)
  - ERYTHEMA MULTIFORME [None]
